FAERS Safety Report 5141613-1 (Version None)
Quarter: 2006Q4

REPORT INFORMATION
  Report Type: 
  Country: None (occurrence: None)
  Receive Date: 20061026
  Receipt Date: 20060906
  Transmission Date: 20070319
  Serious: Yes (Death, Hospitalization, Other)
  Sender: FDA-Public Use
  Company Number: 2006069295

PATIENT
  Age: 54 Year
  Sex: Male

DRUGS (3)
  1. BEXTRA [Suspect]
     Dates: start: 20000111, end: 20040429
  2. CELEBREX [Suspect]
     Dates: start: 20000111, end: 20040429
  3. VIOXX [Suspect]
     Dosage: 25 MG (25 MG, 1 IN 1 D)
     Dates: start: 20001003, end: 20040429

REACTIONS (4)
  - ACUTE MYOCARDIAL INFARCTION [None]
  - ATRIAL FIBRILLATION [None]
  - MYOCARDIAL ISCHAEMIA [None]
  - VENTRICULAR DYSFUNCTION [None]
